FAERS Safety Report 4363743-4 (Version None)
Quarter: 2004Q2

REPORT INFORMATION
  Report Type: 
  Country: None (occurrence: None)
  Receive Date: 20040517
  Receipt Date: 20040415
  Transmission Date: 20050107
  Serious: No
  Sender: FDA-Public Use
  Company Number: S04-USA-02134-01

PATIENT
  Age: 77 Year
  Sex: Male

DRUGS (6)
  1. NAMENDA [Suspect]
     Indication: DEMENTIA ALZHEIMER'S TYPE
     Dosage: 5 MG QD PO
     Route: 048
     Dates: start: 20040412
  2. ARICEPT [Concomitant]
  3. MIRAPEX [Concomitant]
  4. KLONOPIN [Concomitant]
  5. ZOLOFT [Concomitant]
  6. BLOOD PRESSURE PILLS (NOS) [Concomitant]

REACTIONS (3)
  - ANOREXIA [None]
  - LETHARGY [None]
  - SOMNOLENCE [None]
